FAERS Safety Report 19399500 (Version 1)
Quarter: 2021Q2

REPORT INFORMATION
  Report Type: Spontaneous
  Country: US (occurrence: US)
  Receive Date: 20210610
  Receipt Date: 20210610
  Transmission Date: 20210717
  Serious: Yes (Other)
  Sender: FDA-Public Use
  Company Number: US-SUNOVION-2021SUN002099

PATIENT
  Sex: Female

DRUGS (1)
  1. LEVALBUTEROL TARTRATE. [Suspect]
     Active Substance: LEVALBUTEROL TARTRATE
     Dosage: UNK
     Route: 055
     Dates: start: 20210527

REACTIONS (8)
  - Drug ineffective [Unknown]
  - Product label issue [Unknown]
  - Choking [Unknown]
  - Device difficult to use [Unknown]
  - Near death experience [Unknown]
  - Drug delivery system issue [Unknown]
  - Device issue [Unknown]
  - Asthma [Unknown]

NARRATIVE: CASE EVENT DATE: 20210527
